FAERS Safety Report 4967237-4 (Version None)
Quarter: 2006Q1

REPORT INFORMATION
  Report Type: 
  Country: None (occurrence: None)
  Receive Date: 20060328
  Receipt Date: 20060318
  Transmission Date: 20060701
  Serious: No
  Sender: FDA-Public Use
  Company Number: CART-10438

PATIENT
  Age: 39 Year
  Sex: Male
  Weight: 108.8633 kg

DRUGS (1)
  1. CARTICEL [Suspect]
     Indication: BONE DISORDER
     Dosage: 1 NA ONCE, IS
     Route: 024
     Dates: start: 19991006, end: 19991006

REACTIONS (4)
  - IMPLANT SITE REACTION [None]
  - OSTEOARTHRITIS [None]
  - PROCEDURAL PAIN [None]
  - THERAPY NON-RESPONDER [None]
